FAERS Safety Report 5290514-7 (Version None)
Quarter: 2007Q2

REPORT INFORMATION
  Report Type: 
  Country: None (occurrence: None)
  Receive Date: 20070409
  Receipt Date: 20070330
  Transmission Date: 20071010
  Serious: Yes (Death, Hospitalization)
  Sender: FDA-Public Use
  Company Number: 2007UW02503

PATIENT
  Age: 78 Year
  Sex: Male

DRUGS (2)
  1. SEROQUEL [Suspect]
     Route: 048
     Dates: start: 20051019
  2. ATIVAN [Suspect]
     Dates: start: 20051019

REACTIONS (5)
  - ASPIRATION [None]
  - DEATH [None]
  - FOREIGN BODY TRAUMA [None]
  - MUSCULAR WEAKNESS [None]
  - STUPOR [None]
